FAERS Safety Report 15213707 (Version 2)
Quarter: 2019Q2

REPORT INFORMATION
  Report Type: Spontaneous
  Country: IN (occurrence: IN)
  Receive Date: 20180730
  Receipt Date: 20190507
  Transmission Date: 20190711
  Serious: Yes (Other)
  Sender: FDA-Public Use
  Company Number: IN-BAUSCH-BL-2018-020166

PATIENT
  Age: 3 Month
  Sex: Female

DRUGS (3)
  1. PREDNISOLONE. [Suspect]
     Active Substance: PREDNISOLONE
     Indication: PHACES SYNDROME
     Route: 048
  2. TOBRAMYCIN. [Concomitant]
     Active Substance: TOBRAMYCIN
     Indication: PHACES SYNDROME
     Route: 061
  3. BETIMOL [Suspect]
     Active Substance: TIMOLOL
     Indication: PHACES SYNDROME
     Dosage: 1 DROP PER CM 2 (4 DROPS PER LESION) (IN 12 HOURS)
     Route: 061

REACTIONS (1)
  - Hyperkalaemia [Recovered/Resolved]
